FAERS Safety Report 7758534-8 (Version None)
Quarter: 2011Q3

REPORT INFORMATION
  Report Type: 
  Country: None (occurrence: None)
  Receive Date: 20110914
  Receipt Date: 20110614
  Transmission Date: 20111222
  Serious: Yes (Hospitalization)
  Sender: FDA-Public Use
  Company Number: DSA_47582_2011

PATIENT
  Age: 61 Year
  Sex: Female

DRUGS (49)
  1. KARVEZIDE (KARVEZIDE -HYDROCHLOROTHIAZIDE IRBESARTAN) 150 MG (NOT SPEC [Suspect]
     Indication: PRODUCT USED FOR UNKNOWN INDICATION
     Dosage: (150 MG QD), (DF)
     Dates: start: 20010101, end: 20110609
  2. KARVEZIDE (KARVEZIDE -HYDROCHLOROTHIAZIDE IRBESARTAN) 150 MG (NOT SPEC [Suspect]
     Indication: PRODUCT USED FOR UNKNOWN INDICATION
     Dosage: (150 MG QD), (DF)
     Dates: start: 20110609
  3. PANADOL OSTEO [Concomitant]
  4. REFRESH PLUS [Concomitant]
  5. LERCANIDIPINE [Concomitant]
  6. E VITAMIN [Concomitant]
  7. ROSUVASTATIN [Concomitant]
  8. INDAPAMIDE [Concomitant]
  9. CHLOROTHIAZIDE [Concomitant]
  10. NSAID'S [Concomitant]
  11. TOLVON [Concomitant]
  12. CIRCADIN [Concomitant]
  13. OSTELIN /00107901/ [Concomitant]
  14. CLONIDINE [Concomitant]
  15. LOPID [Concomitant]
  16. BETALOC/00376902/ [Concomitant]
  17. CALCIUM CARBONATE [Concomitant]
  18. CARDIZEM [Suspect]
     Indication: PRODUCT USED FOR UNKNOWN INDICATION
     Dosage: (60 MG BID), (180 MG QD)
     Dates: start: 20110609
  19. NORMAL PLUS [Concomitant]
  20. RETINOL [Concomitant]
  21. QUESTRAN LIGHT [Concomitant]
  22. OSMOLAX /00163401/ [Concomitant]
  23. MOVICOL /01749801/ [Concomitant]
  24. VAXIGRIP [Concomitant]
  25. OLMESARTAN MEDOXOMIL [Concomitant]
  26. EFFEXOR [Concomitant]
  27. LESCOL [Concomitant]
  28. PRAVASTATIN [Concomitant]
  29. VIOXX [Concomitant]
  30. NITROLINGUAL [Concomitant]
  31. FLUVAX [Concomitant]
  32. LEUCOVORIN CALCIUM [Concomitant]
  33. LIPITOR [Concomitant]
  34. PANTOPRAZOLE [Concomitant]
  35. VITAMIN B COMPLEX CAP [Concomitant]
  36. PANVAX H1N1 [Concomitant]
  37. ADALAT [Concomitant]
  38. EZETIMIBE [Concomitant]
  39. ATORVASTATIN [Concomitant]
  40. COLOXYL WITH SENNA [Concomitant]
  41. NITRO-DUR [Concomitant]
  42. SYSTANE [Concomitant]
  43. SENNA (00142201/ [Concomitant]
  44. OLIVE LEAVES EXTRACT [Concomitant]
  45. METFORMIN HCL [Concomitant]
  46. LERCANIDIPINE [Concomitant]
  47. IMDUR [Concomitant]
  48. ZOCOR [Concomitant]
  49. ZOLOFT [Concomitant]

REACTIONS (10)
  - ANURIA [None]
  - DYSURIA [None]
  - PAIN [None]
  - RENAL PAIN [None]
  - PALPITATIONS [None]
  - URINARY TRACT INFECTION [None]
  - INSOMNIA [None]
  - PYELONEPHRITIS [None]
  - FLANK PAIN [None]
  - CHILLS [None]
